FAERS Safety Report 7872932 (Version 2)
Quarter: 2013Q3

REPORT INFORMATION
  Report Type: Report from Study
  Country: US (occurrence: US)
  Receive Date: 20110325
  Receipt Date: 20130720
  Transmission Date: 20140515
  Serious: Yes (Hospitalization, Other)
  Sender: FDA-Public Use
  Company Number: US-ASTRAZENECA-2011SE14944

PATIENT
  Age: 28204 Day
  Sex: Female

DRUGS (8)
  1. LISINOPRIL (NON AZ PRODUCT) [Suspect]
     Dates: start: 20101118
  2. SAXAGLIPTIN [Suspect]
     Indication: TYPE 2 DIABETES MELLITUS
     Dosage: DAILY
     Route: 048
     Dates: start: 20100910
  3. NOVOLOG [Suspect]
     Indication: TYPE 2 DIABETES MELLITUS
     Dates: end: 20101004
  4. NOVOLOG [Suspect]
     Indication: TYPE 2 DIABETES MELLITUS
     Dates: start: 20101004, end: 20101026
  5. NOVOLOG [Suspect]
     Indication: TYPE 2 DIABETES MELLITUS
     Dates: start: 20101026
  6. LANTUS [Suspect]
     Indication: TYPE 2 DIABETES MELLITUS
     Dates: end: 20101004
  7. LANTUS [Suspect]
     Indication: TYPE 2 DIABETES MELLITUS
     Dates: start: 20101004, end: 20101026
  8. LANTUS [Suspect]
     Indication: TYPE 2 DIABETES MELLITUS
     Dosage: 74 IU, RESTARTED:16MAR2011
     Dates: start: 20101026

REACTIONS (2)
  - Biliary polyp [Recovered/Resolved]
  - Pancreatitis [Recovered/Resolved]
